FAERS Safety Report 11644032 (Version 1)
Quarter: 2015Q4

REPORT INFORMATION
  Report Type: Spontaneous
  Country: US (occurrence: None)
  Receive Date: 20151019
  Receipt Date: 20151019
  Transmission Date: 20160304
  Serious: Yes (Hospitalization)
  Sender: FDA-Public Use
  Company Number: None

PATIENT
  Age: 52 Year
  Sex: Female
  Weight: 77.57 kg

DRUGS (7)
  1. BUPROPION XL [Concomitant]
     Active Substance: BUPROPION
  2. LOSARTAN. [Concomitant]
     Active Substance: LOSARTAN
  3. BIOTIN [Concomitant]
     Active Substance: BIOTIN
  4. DHEA SUPPLEMENT [Concomitant]
     Active Substance: PRASTERONE
  5. SAXENDA [Suspect]
     Active Substance: LIRAGLUTIDE
     Indication: WEIGHT DECREASED
     Route: 058
     Dates: start: 20150825, end: 20151012
  6. ASA [Concomitant]
     Active Substance: ASPIRIN
  7. NORCO [Concomitant]
     Active Substance: ACETAMINOPHEN\HYDROCODONE BITARTRATE

REACTIONS (9)
  - Eructation [None]
  - Pancreatitis [None]
  - Tenderness [None]
  - Pain [None]
  - Abdominal pain lower [None]
  - Diarrhoea [None]
  - Abdominal distension [None]
  - Abdominal pain upper [None]
  - Back pain [None]

NARRATIVE: CASE EVENT DATE: 20151013
